FAERS Safety Report 9146094 (Version 1)
Quarter: 2013Q1

REPORT INFORMATION
  Report Type: Spontaneous
  Country: US (occurrence: US)
  Receive Date: 20130307
  Receipt Date: 20130307
  Transmission Date: 20140127
  Serious: No
  Sender: FDA-Public Use
  Company Number: US-BAYER-2013-028818

PATIENT
  Age: 83 Year
  Sex: Male
  Weight: 76 kg

DRUGS (13)
  1. ALEVE CAPLET/TABLET,MIDOL EXTENDED RELIEF CAPLET [Suspect]
     Dosage: UNK
     Route: 048
     Dates: start: 2012
  2. ALEVE CAPLET/TABLET,MIDOL EXTENDED RELIEF CAPLET [Suspect]
     Dosage: 1/2 CAPLET, QD
  3. ALEVE CAPLET/TABLET,MIDOL EXTENDED RELIEF CAPLET [Suspect]
     Dosage: 1 CAPLET, QD
  4. ALEVE CAPLET/TABLET,MIDOL EXTENDED RELIEF CAPLET [Suspect]
     Dosage: 1 CAPLET, QD
  5. ALEVE CAPLET/TABLET,MIDOL EXTENDED RELIEF CAPLET [Suspect]
     Dosage: 1/2 CAPLET, HS
  6. AVODART [Concomitant]
  7. CASODEX [Concomitant]
  8. LOSARTAN [Concomitant]
  9. SIMVASTATIN [Concomitant]
  10. FISH OIL [Concomitant]
  11. LYCOPENE [Concomitant]
  12. MAGNESIUM [Concomitant]
  13. 2 UNKNOWN PRESCRIBED SUPPLEMENTS [Concomitant]

REACTIONS (1)
  - Incorrect drug administration duration [None]
